FAERS Safety Report 8124448-7 (Version None)
Quarter: 2012Q1

REPORT INFORMATION
  Report Type: 
  Country: None (occurrence: None)
  Receive Date: 20120209
  Receipt Date: 20120131
  Transmission Date: 20120608
  Serious: Yes (Hospitalization)
  Sender: FDA-Public Use
  Company Number: CA-JNJFOC-20120201810

PATIENT
  Sex: Male
  Weight: 96 kg

DRUGS (6)
  1. NEXIUM [Concomitant]
     Route: 048
  2. DIOVAN [Concomitant]
     Route: 048
  3. IMURAN [Concomitant]
     Route: 048
  4. LIPITOR [Concomitant]
     Route: 048
  5. ASPIRIN [Concomitant]
     Route: 065
  6. REMICADE [Suspect]
     Indication: COLITIS ULCERATIVE
     Route: 042
     Dates: start: 20100518

REACTIONS (1)
  - NEPHROLITHIASIS [None]
